FAERS Safety Report 5011482-9 (Version None)
Quarter: 2006Q2

REPORT INFORMATION
  Report Type: 
  Country: None (occurrence: None)
  Receive Date: 20060525
  Receipt Date: 20060410
  Transmission Date: 20061013
  Serious: Yes (Other)
  Sender: FDA-Public Use
  Company Number: US-MERCK-0604USA01796

PATIENT
  Age: 9 Year
  Sex: Male

DRUGS (3)
  1. SINGULAIR [Suspect]
     Indication: ASTHMA
     Route: 048
     Dates: start: 20040401, end: 20060301
  2. VITAMINS (UNSPECIFIED) [Concomitant]
     Route: 065
  3. ADVIL [Concomitant]
     Indication: INFLAMMATION
     Route: 048

REACTIONS (10)
  - ARTHRALGIA [None]
  - BLOOD IRON DECREASED [None]
  - BONE LESION [None]
  - C-REACTIVE PROTEIN INCREASED [None]
  - EPSTEIN-BARR VIRUS TEST POSITIVE [None]
  - HAEMOGLOBIN DECREASED [None]
  - HAPTOGLOBIN INCREASED [None]
  - JOINT STIFFNESS [None]
  - PARVOVIRUS B19 SEROLOGY POSITIVE [None]
  - SOFT TISSUE INFLAMMATION [None]
